FAERS Safety Report 7515413-9 (Version None)
Quarter: 2011Q2

REPORT INFORMATION
  Report Type: 
  Country: None (occurrence: None)
  Receive Date: 20110601
  Receipt Date: 20100615
  Transmission Date: 20111010
  Serious: Yes (Other)
  Sender: FDA-Public Use
  Company Number: US-PFIZER INC-2010052378

PATIENT
  Sex: Female
  Weight: 81 kg

DRUGS (5)
  1. CHANTIX [Suspect]
     Indication: SMOKING CESSATION THERAPY
     Dosage: UNK
     Route: 048
     Dates: start: 20090101, end: 20090101
  2. LISINOPRIL [Concomitant]
  3. PULMICORT [Concomitant]
  4. CHANTIX [Suspect]
     Dosage: 1 MG, 2X/DAY
     Dates: start: 20100401, end: 20100401
  5. PROAIR HFA [Concomitant]

REACTIONS (1)
  - CHEST PAIN [None]
